FAERS Safety Report 4907070-2 (Version None)
Quarter: 2006Q1

REPORT INFORMATION
  Report Type: 
  Country: None (occurrence: None)
  Receive Date: 20060206
  Receipt Date: 20060120
  Transmission Date: 20060701
  Serious: Yes (Other)
  Sender: FDA-Public Use
  Company Number: 2006VX000042

PATIENT
  Sex: Female

DRUGS (2)
  1. INTERFERON ALFACON-1 [Suspect]
  2. PEGINTERFERON ALFA-2B [Suspect]
     Dates: start: 20001212

REACTIONS (1)
  - CONVULSION [None]
